FAERS Safety Report 7081332-8 (Version None)
Quarter: 2010Q4

REPORT INFORMATION
  Report Type: 
  Country: None (occurrence: None)
  Receive Date: 20101103
  Receipt Date: 20101025
  Transmission Date: 20110411
  Serious: Yes (Hospitalization)
  Sender: FDA-Public Use
  Company Number: JP-ABBOTT-10P-087-0681059-00

PATIENT
  Sex: Male

DRUGS (4)
  1. NORVIR [Suspect]
     Indication: HIV INFECTION
     Dosage: 200 MG, DAILY
     Route: 048
     Dates: start: 20081112
  2. FOSAMPRENAVIR CALCIUM HYDRATE [Concomitant]
     Indication: HIV INFECTION
     Route: 048
     Dates: start: 20081112
  3. TRUVADA [Concomitant]
     Indication: HIV INFECTION
     Dosage: 1 TABLET, DAILY
     Route: 048
     Dates: start: 20081112
  4. COAGULATION FACTOR VIII [Concomitant]
     Indication: HAEMOPHILIA
     Dosage: 1000 UNIT, DAILY, 10 IN 1 MONTH
     Route: 042

REACTIONS (2)
  - MUSCLE HAEMORRHAGE [None]
  - PAIN [None]
